FAERS Safety Report 9766688 (Version 1)
Quarter: 2013Q4

REPORT INFORMATION
  Report Type: Spontaneous
  Country: US (occurrence: US)
  Receive Date: 20131217
  Receipt Date: 20131217
  Transmission Date: 20140711
  Serious: No
  Sender: FDA-Public Use
  Company Number: US-BIOGENIDEC-2013BI118037

PATIENT
  Sex: Female

DRUGS (5)
  1. TECFIDERA [Suspect]
     Indication: MULTIPLE SCLEROSIS
     Route: 048
     Dates: start: 20131006
  2. NEURONTIN [Concomitant]
  3. FLEXERIL [Concomitant]
  4. FAMOTIDINE [Concomitant]
  5. AMANTADINE [Concomitant]

REACTIONS (5)
  - Muscle spasms [Unknown]
  - Flushing [Unknown]
  - Pruritus [Unknown]
  - Vomiting [Unknown]
  - Diarrhoea [Unknown]
